FAERS Safety Report 6483427-6 (Version None)
Quarter: 2009Q4

REPORT INFORMATION
  Report Type: 
  Country: None (occurrence: None)
  Receive Date: 20091123
  Receipt Date: 20090826
  Transmission Date: 20100525
  Serious: No
  Sender: FDA-Public Use
  Company Number: 8051096

PATIENT
  Age: 38 Year
  Sex: Male

DRUGS (2)
  1. CIMZIA [Suspect]
     Indication: CROHN'S DISEASE
     Dosage: 400 MG SC
     Route: 058
     Dates: start: 20090501
  2. DAPSONE [Concomitant]

REACTIONS (3)
  - DIZZINESS [None]
  - MIGRAINE [None]
  - NAUSEA [None]
